FAERS Safety Report 12986298 (Version 2)
Quarter: 2016Q4

REPORT INFORMATION
  Report Type: Spontaneous
  Country: JP (occurrence: JP)
  Receive Date: 20161130
  Receipt Date: 20161202
  Transmission Date: 20170207
  Serious: Yes (Other)
  Sender: FDA-Public Use
  Company Number: PHJP2016JP034285

PATIENT
  Age: 80 Year
  Sex: Male

DRUGS (2)
  1. IMATINIB [Suspect]
     Active Substance: IMATINIB
     Indication: CHRONIC MYELOID LEUKAEMIA
     Dosage: 200 MG, UNK
     Route: 048
     Dates: start: 201405, end: 201412
  2. IMATINIB [Suspect]
     Active Substance: IMATINIB
     Dosage: 300 MG, UNK
     Route: 048
     Dates: start: 201412

REACTIONS (5)
  - Pigmentation disorder [Unknown]
  - Rash [Unknown]
  - Dermatitis bullous [Unknown]
  - Blister [Unknown]
  - Erythema [Unknown]
